FAERS Safety Report 8815084 (Version 1)
Quarter: 2012Q4

REPORT INFORMATION
  Report Type: 
  Country: AR (occurrence: AR)
  Receive Date: 20120928
  Receipt Date: 20120928
  Transmission Date: 20130627
  Serious: Yes (Other)
  Sender: FDA-Public Use
  Company Number: PHHY2012AR084361

PATIENT
  Sex: Male

DRUGS (1)
  1. DIOVAN [Suspect]
     Indication: BLOOD PRESSURE INCREASED

REACTIONS (3)
  - Brain neoplasm [Not Recovered/Not Resolved]
  - Prostate cancer [Not Recovered/Not Resolved]
  - Depressed mood [Unknown]
